FAERS Safety Report 18560461 (Version 2)
Quarter: 2021Q4

REPORT INFORMATION
  Report Type: Spontaneous
  Country: US (occurrence: US)
  Receive Date: 20201130
  Receipt Date: 20211122
  Transmission Date: 20220303
  Serious: Yes (Other)
  Sender: FDA-Public Use
  Company Number: US-BAYER-2020-257346

PATIENT
  Age: 30 Year
  Sex: Female
  Weight: 104.76 kg

DRUGS (2)
  1. MIRENA [Suspect]
     Active Substance: LEVONORGESTREL
     Indication: Contraception
     Dosage: 20?G/DAY
     Route: 015
     Dates: start: 20201021, end: 20201027
  2. CYTOTEC [Concomitant]
     Active Substance: MISOPROSTOL

REACTIONS (3)
  - Embedded device [None]
  - Procedural pain [None]
  - Uterine pain [None]

NARRATIVE: CASE EVENT DATE: 20201021
